FAERS Safety Report 6446555-7 (Version None)
Quarter: 2009Q4

REPORT INFORMATION
  Report Type: 
  Country: None (occurrence: None)
  Receive Date: 20091119
  Receipt Date: 20091110
  Transmission Date: 20100525
  Serious: Yes (Hospitalization)
  Sender: FDA-Public Use
  Company Number: CA-SANOFI-AVENTIS-D01200800221

PATIENT
  Age: 51 Year
  Sex: Male
  Weight: 75 kg

DRUGS (3)
  1. CLOPIDOGREL BISULFATE [Suspect]
     Indication: ACUTE CORONARY SYNDROME
     Dosage: DOSE TEXT: 600 MG LD D1 FOLLOWED BY 150 MG FROM D2 TO D7; 75 MG FROM D8 TO 30UNIT DOSE: 75 MG
     Route: 048
     Dates: start: 20071224
  2. ASPIRIN [Concomitant]
     Indication: ACUTE CORONARY SYNDROME
     Dosage: DOSE TEXT: AT LEAST 300 MG D1; 75-100 MG FROM D2 TO D30
     Route: 048
     Dates: start: 20071224
  3. INTEGRILIN [Concomitant]

REACTIONS (1)
  - VASCULAR PSEUDOANEURYSM [None]
